FAERS Safety Report 24272376 (Version 1)
Quarter: 2024Q3

REPORT INFORMATION
  Report Type: Report from Study
  Country: US (occurrence: US)
  Receive Date: 20240902
  Receipt Date: 20240902
  Transmission Date: 20241017
  Serious: Yes (Other)
  Sender: ROCHE
  Company Number: US-ROCHE-3292210

PATIENT
  Age: 54 Year
  Sex: Female

DRUGS (3)
  1. OCREVUS [Suspect]
     Active Substance: OCRELIZUMAB
     Indication: Relapsing multiple sclerosis
     Dosage: ONGOING: YES
     Route: 065
     Dates: start: 20201210
  2. TECFIDERA [Concomitant]
     Active Substance: DIMETHYL FUMARATE
  3. REBIF [Concomitant]
     Active Substance: INTERFERON BETA-1A

REACTIONS (8)
  - Multiple sclerosis [Not Recovered/Not Resolved]
  - Somnolence [Not Recovered/Not Resolved]
  - Fatigue [Not Recovered/Not Resolved]
  - Anaemia [Not Recovered/Not Resolved]
  - Respiratory syncytial virus infection [Unknown]
  - Arthralgia [Unknown]
  - Headache [Unknown]
  - Multiple sclerosis [Not Recovered/Not Resolved]
